FAERS Safety Report 12840226 (Version 1)
Quarter: 2016Q4

REPORT INFORMATION
  Report Type: Spontaneous
  Country: GB (occurrence: GB)
  Receive Date: 20161012
  Receipt Date: 20161012
  Transmission Date: 20170207
  Serious: Yes (Other)
  Sender: FDA-Public Use
  Company Number: GB-PFIZER INC-2016469055

PATIENT
  Age: 76 Year
  Sex: Male
  Weight: 96 kg

DRUGS (4)
  1. ATORVASTATIN CALCIUM. [Suspect]
     Active Substance: ATORVASTATIN CALCIUM
     Dosage: UNK
     Dates: start: 20140218
  2. DECAPEPTYL /00486501/ [Concomitant]
     Active Substance: GONADORELIN
     Dosage: USE AS DIRECTED
     Dates: start: 20150422
  3. METFORMIN [Concomitant]
     Active Substance: METFORMIN HYDROCHLORIDE
     Dosage: 1 DF, 3X/DAY
     Dates: start: 20150120
  4. TADALAFIL [Concomitant]
     Active Substance: TADALAFIL
     Dosage: DIRECTED
     Dates: start: 20140304

REACTIONS (1)
  - Lip swelling [Recovered/Resolved]

NARRATIVE: CASE EVENT DATE: 20160927
